FAERS Safety Report 6758826-5 (Version None)
Quarter: 2010Q2

REPORT INFORMATION
  Report Type: 
  Country: None (occurrence: None)
  Receive Date: 20100603
  Receipt Date: 20100525
  Transmission Date: 20101027
  Serious: Yes (Other)
  Sender: FDA-Public Use
  Company Number: 2010AL003155

PATIENT
  Sex: Male

DRUGS (1)
  1. SERTRALINE HCL [Suspect]

REACTIONS (2)
  - TINNITUS [None]
  - VISUAL ACUITY REDUCED [None]
